FAERS Safety Report 8337436-2 (Version None)
Quarter: 2012Q1

REPORT INFORMATION
  Report Type: 
  Country: None (occurrence: None)
  Receive Date: 20120329
  Receipt Date: 20100726
  Transmission Date: 20120608
  Serious: Yes (Other)
  Sender: FDA-Public Use
  Company Number: PHHY2010US49302

PATIENT
  Age: 78 Year
  Sex: Male

DRUGS (7)
  1. GLIPIZIDE [Concomitant]
  2. ASPIRIN [Concomitant]
  3. ACTOS (PIOGLITAZONE, PIOGLITAZONE HYDROCHLORIDE) [Concomitant]
  4. METFORMIN HCL [Concomitant]
  5. EXELON [Suspect]
     Dosage: 9.5 MG, TRANSDERMAL
     Route: 062
  6. LEVOTHYROXNIE (LEVOTHYROXINE) [Concomitant]
  7. LIPITOR [Concomitant]

REACTIONS (3)
  - ANGER [None]
  - DEPRESSION [None]
  - FEELING ABNORMAL [None]
